FAERS Safety Report 9264665 (Version 1)
Quarter: 2013Q2

REPORT INFORMATION
  Report Type: Spontaneous
  Country: US (occurrence: US)
  Receive Date: 20130501
  Receipt Date: 20130501
  Transmission Date: 20140414
  Serious: Yes (Hospitalization)
  Sender: FDA-Public Use
  Company Number: US-BIOGENIDEC-2013BI038091

PATIENT
  Age: 56 Year
  Sex: Male

DRUGS (17)
  1. AVONEX [Suspect]
     Indication: MULTIPLE SCLEROSIS
     Route: 030
     Dates: start: 20130330
  2. ALBUTEROL 3 MG/IPRATROPIUM 0.5MG NEB SOL [Concomitant]
     Indication: SARCOIDOSIS
     Route: 055
  3. VENTOLIN 2 PUFFS [Concomitant]
     Indication: SARCOIDOSIS
     Route: 055
  4. AMLODIPINE BESYLATE [Concomitant]
     Indication: HYPERTENSION
     Route: 048
  5. ASA [Concomitant]
     Indication: THROMBOSIS PROPHYLAXIS
     Route: 048
  6. ESCITALOPRAM [Concomitant]
     Indication: ANTIDEPRESSANT THERAPY
     Route: 048
  7. AMITRIPTYLINE [Concomitant]
     Indication: SLEEP DISORDER
     Route: 048
  8. DIOVAN [Concomitant]
     Indication: HYPERTENSION
     Route: 048
  9. AGGRENOX 20MG/200MG [Concomitant]
     Indication: PROPHYLAXIS
     Route: 048
  10. ZYRTEC [Concomitant]
     Indication: MULTIPLE ALLERGIES
     Route: 048
  11. MULTI VITAMIN NO IRON [Concomitant]
     Route: 048
  12. CALCIUM  +D [Concomitant]
     Indication: MULTIPLE SCLEROSIS
     Route: 048
  13. PREDNISONE [Concomitant]
     Indication: SARCOIDOSIS
     Route: 048
  14. METFORMIN [Concomitant]
     Indication: DIABETES MELLITUS
     Route: 048
  15. BUSPIRONE [Concomitant]
     Indication: ANXIETY
     Route: 048
  16. GUAIFENESIN [Concomitant]
     Indication: PROPHYLAXIS
     Route: 048
  17. ACIDOPHILUS LACTO BACILLI 2 TABS [Concomitant]
     Indication: PROBIOTIC THERAPY
     Route: 048

REACTIONS (1)
  - Bronchitis [Recovered/Resolved]
